FAERS Safety Report 25746181 (Version 1)
Quarter: 2025Q3

REPORT INFORMATION
  Report Type: Spontaneous
  Country: EU (occurrence: None)
  Receive Date: 20250901
  Receipt Date: 20250901
  Transmission Date: 20251021
  Serious: Yes (Other)
  Sender: ORION
  Company Number: None

PATIENT
  Age: 83 Year
  Sex: Female

DRUGS (17)
  1. METHOTREXATE [Suspect]
     Active Substance: METHOTREXATE
     Indication: Product used for unknown indication
  2. RAMIPRIL [Suspect]
     Active Substance: RAMIPRIL
     Indication: Product used for unknown indication
     Dosage: (28 TABLETS)
  3. TOCILIZUMAB [Suspect]
     Active Substance: TOCILIZUMAB
     Indication: Product used for unknown indication
     Dates: start: 20250113
  4. ZALDIAR [Suspect]
     Active Substance: ACETAMINOPHEN\TRAMADOL HYDROCHLORIDE
     Indication: Product used for unknown indication
     Dosage: (20 FILM COATED TABLETS - 1), STRENGTH: 320MG/37.5MG
  5. CORTISONE ACETATE [Suspect]
     Active Substance: CORTISONE ACETATE
     Indication: Product used for unknown indication
  6. CORTISONE ACETATE [Suspect]
     Active Substance: CORTISONE ACETATE
  7. CORTISONE ACETATE [Suspect]
     Active Substance: CORTISONE ACETATE
  8. FOSAMAX [Suspect]
     Active Substance: ALENDRONATE SODIUM
     Indication: Product used for unknown indication
     Dosage: (70 MG 4 TABLETS - 1 TABLET - 7 DAYS)
  9. CALCIUM CARBONATE\CHOLECALCIFEROL [Suspect]
     Active Substance: CALCIUM CARBONATE\CHOLECALCIFEROL
     Indication: Product used for unknown indication
     Dosage: (500MG/1000UI 30 CHEWABLE TABLETS - 1)
  10. PREDNISONE [Suspect]
     Active Substance: PREDNISONE
     Indication: Giant cell arteritis
     Dates: start: 20250203, end: 202503
  11. PREDNISONE [Suspect]
     Active Substance: PREDNISONE
     Dates: start: 20250203
  12. PREDNISONE [Suspect]
     Active Substance: PREDNISONE
     Dates: start: 20250203
  13. PREDNISONE [Suspect]
     Active Substance: PREDNISONE
  14. HYDROCHLOROTHIAZIDE [Suspect]
     Active Substance: HYDROCHLOROTHIAZIDE
     Indication: Hypertension
     Dosage: (50MG 20 TABLETS)
     Dates: start: 20130615, end: 20250411
  15. OMEPRAZOLE [Suspect]
     Active Substance: OMEPRAZOLE
     Indication: Product used for unknown indication
     Dosage: (20MG 28 CAPSULES)
  16. TRYPTIZOL [Suspect]
     Active Substance: AMITRIPTYLINE HYDROCHLORIDE
     Indication: Product used for unknown indication
     Dosage: (10MG 24 FILM COATED TABLETS - 1 TABLET -24 HOURS), STRENGTH: 10MG
  17. SIMVASTATIN [Suspect]
     Active Substance: SIMVASTATIN
     Indication: Product used for unknown indication

REACTIONS (3)
  - Hypokalaemia [Recovering/Resolving]
  - Dizziness [Recovering/Resolving]
  - Muscular weakness [Recovering/Resolving]

NARRATIVE: CASE EVENT DATE: 20250411
